FAERS Safety Report 7770274-8 (Version None)
Quarter: 2011Q3

REPORT INFORMATION
  Report Type: 
  Country: None (occurrence: None)
  Receive Date: 20110922
  Receipt Date: 20100302
  Transmission Date: 20111222
  Serious: No
  Sender: FDA-Public Use
  Company Number: US-ASTRAZENECA-2009SE17910

PATIENT
  Age: 17252 Day
  Sex: Male

DRUGS (7)
  1. SEROQUEL [Suspect]
     Dosage: 100 MG-200MG
     Route: 048
     Dates: start: 20031110, end: 20041101
  2. ABILIFY [Concomitant]
     Dosage: 5MG-10MG
     Route: 048
     Dates: start: 20031110, end: 20040122
  3. ATIVAN [Concomitant]
     Route: 048
     Dates: start: 20031110, end: 20040122
  4. TYLENOL-500 [Concomitant]
     Route: 048
     Dates: start: 20041028
  5. SYNTHROID [Concomitant]
     Dosage: 25 MCG-50 MCG
     Dates: start: 20051108
  6. WELLBUTRIN [Concomitant]
     Dosage: 50 MG-100MG
     Route: 048
     Dates: start: 20031110, end: 20051004
  7. LITHOBID [Concomitant]
     Dosage: 1200 MG -1500MG
     Route: 048
     Dates: start: 20031110

REACTIONS (4)
  - TYPE 2 DIABETES MELLITUS [None]
  - NEPHROGENIC DIABETES INSIPIDUS [None]
  - BLOOD GLUCOSE INCREASED [None]
  - GLUCOSE TOLERANCE IMPAIRED [None]
